FAERS Safety Report 7490016-3 (Version None)
Quarter: 2011Q2

REPORT INFORMATION
  Report Type: 
  Country: None (occurrence: None)
  Receive Date: 20110519
  Receipt Date: 20110505
  Transmission Date: 20111010
  Serious: Yes (Other)
  Sender: FDA-Public Use
  Company Number: US-GENZYME-200826592NA

PATIENT
  Sex: Male

DRUGS (1)
  1. CAMPATH [Suspect]
     Indication: MULTIPLE SCLEROSIS
     Dosage: 60 MG
     Route: 065
     Dates: start: 20070601

REACTIONS (1)
  - IDIOPATHIC THROMBOCYTOPENIC PURPURA [None]
